FAERS Safety Report 6632349-6 (Version None)
Quarter: 2010Q1

REPORT INFORMATION
  Report Type: 
  Country: None (occurrence: None)
  Receive Date: 20100310
  Receipt Date: 20100223
  Transmission Date: 20100710
  Serious: Yes (Other)
  Sender: FDA-Public Use
  Company Number: US-DEXPHARM-20100201

PATIENT
  Age: 67 Year
  Sex: Male

DRUGS (4)
  1. OMEPRAZOLE [Suspect]
     Indication: DYSPEPSIA
     Dosage: 20 MG TWICE A DAY, ORAL
     Route: 048
     Dates: start: 20100215, end: 20100218
  2. NIFEDIPINE [Concomitant]
  3. ASPIRIN [Concomitant]
  4. BENAZEPRIL HYDROCHLORIDE [Concomitant]

REACTIONS (5)
  - DIARRHOEA [None]
  - DIZZINESS [None]
  - GASTROENTERITIS [None]
  - HEADACHE [None]
  - LOSS OF CONSCIOUSNESS [None]
